FAERS Safety Report 5567553-1 (Version None)
Quarter: 2007Q4

REPORT INFORMATION
  Report Type: 
  Country: None (occurrence: None)
  Receive Date: 20071219
  Receipt Date: 20071207
  Transmission Date: 20080405
  Serious: Yes (Other)
  Sender: FDA-Public Use
  Company Number: JP-PFIZER INC-2006105118

PATIENT
  Sex: Male
  Weight: 60 kg

DRUGS (10)
  1. EPIRUBICIN HYDROCHLORIDE [Suspect]
     Indication: BREAST CANCER
     Route: 042
  2. EPIRUBICIN HYDROCHLORIDE [Suspect]
     Route: 042
  3. EPIRUBICIN HYDROCHLORIDE [Suspect]
  4. EPIRUBICIN HYDROCHLORIDE [Suspect]
     Dates: start: 20060724, end: 20060724
  5. CYCLOPHOSPHAMIDE [Suspect]
     Indication: BREAST CANCER
     Route: 042
  6. CYCLOPHOSPHAMIDE [Suspect]
     Route: 042
  7. CYCLOPHOSPHAMIDE [Suspect]
  8. CYCLOPHOSPHAMIDE [Suspect]
     Dates: start: 20060724, end: 20060724
  9. DECADRON [Concomitant]
     Route: 042
     Dates: start: 20060522, end: 20060802
  10. ZOFRAN [Concomitant]
     Route: 042
     Dates: start: 20060522, end: 20060724

REACTIONS (6)
  - ALANINE AMINOTRANSFERASE INCREASED [None]
  - ASPARTATE AMINOTRANSFERASE INCREASED [None]
  - BLOOD LACTATE DEHYDROGENASE INCREASED [None]
  - LYMPHOCYTE COUNT DECREASED [None]
  - MALAISE [None]
  - PYREXIA [None]
